FAERS Safety Report 9107328 (Version 1)
Quarter: 2013Q1

REPORT INFORMATION
  Report Type: Spontaneous
  Country: US (occurrence: US)
  Receive Date: 20130221
  Receipt Date: 20130221
  Transmission Date: 20140127
  Serious: Yes (Death, Other)
  Sender: FDA-Public Use
  Company Number: US-ELI_LILLY_AND_COMPANY-US201302005571

PATIENT
  Sex: Female

DRUGS (2)
  1. ADCIRCA [Suspect]
     Indication: PULMONARY HYPERTENSION
     Dosage: 2 DF, UNK
  2. OXYGEN [Concomitant]

REACTIONS (2)
  - Death [Fatal]
  - Oxygen saturation decreased [Not Recovered/Not Resolved]
